FAERS Safety Report 6300661-6 (Version None)
Quarter: 2009Q3

REPORT INFORMATION
  Report Type: 
  Country: None (occurrence: None)
  Receive Date: 20090806
  Receipt Date: 20090726
  Transmission Date: 20100115
  Serious: Yes (Hospitalization)
  Sender: FDA-Public Use
  Company Number: ALL1-2009-01972

PATIENT
  Age: 5 Year
  Sex: Male
  Weight: 19 kg

DRUGS (5)
  1. DAYTRANA [Suspect]
     Indication: ATTENTION DEFICIT/HYPERACTIVITY DISORDER
     Dosage: 15 MG, 1X/DAY: QD, TRANSDERMAL, 20 MG, 1X/DAY: QD, TRANSDERMAL
     Route: 062
     Dates: start: 20081001, end: 20090706
  2. DAYTRANA [Suspect]
     Indication: ATTENTION DEFICIT/HYPERACTIVITY DISORDER
     Dosage: 15 MG, 1X/DAY: QD, TRANSDERMAL, 20 MG, 1X/DAY: QD, TRANSDERMAL
     Route: 062
     Dates: start: 20090706
  3. DAYTRANA [Suspect]
  4. TRILEPTAL [Concomitant]
  5. VITAMINS NOS (VITAMINS NOS) [Concomitant]

REACTIONS (11)
  - APPLICATION SITE ERYTHEMA [None]
  - APPLICATION SITE PAIN [None]
  - APPLICATION SITE PRURITUS [None]
  - DIZZINESS [None]
  - DRUG SCREEN POSITIVE [None]
  - FEELING ABNORMAL [None]
  - HEADACHE [None]
  - LYME DISEASE [None]
  - MALAISE [None]
  - OFF LABEL USE [None]
  - PRODUCT QUALITY ISSUE [None]
